FAERS Safety Report 9258774 (Version 2)
Quarter: 2013Q2

REPORT INFORMATION
  Report Type: Spontaneous
  Country: US (occurrence: US)
  Receive Date: 20130426
  Receipt Date: 20130521
  Transmission Date: 20140414
  Serious: No
  Sender: FDA-Public Use
  Company Number: US-JNJFOC-20130410374

PATIENT
  Sex: Male

DRUGS (2)
  1. RISPERDAL CONSTA [Suspect]
     Indication: MAJOR DEPRESSION
     Route: 030
  2. INVEGA SUSTENNA [Suspect]
     Indication: MAJOR DEPRESSION
     Route: 030
     Dates: start: 20130329

REACTIONS (1)
  - Injection site haemorrhage [Recovered/Resolved]
